FAERS Safety Report 18499195 (Version 4)
Quarter: 2021Q3

REPORT INFORMATION
  Report Type: Report from Study
  Country: CN (occurrence: CN)
  Receive Date: 20201113
  Receipt Date: 20210901
  Transmission Date: 20211014
  Serious: Yes (Hospitalization)
  Sender: FDA-Public Use
  Company Number: CN-AMGEN-CHNCT2020180535

PATIENT
  Age: 23 Year
  Sex: Female

DRUGS (9)
  1. ERENUMAB [Suspect]
     Active Substance: ERENUMAB
     Indication: MIGRAINE
     Dosage: 1 ML, QMO
     Route: 058
     Dates: start: 20200923, end: 20200923
  2. COMPOUND GLYCYRRHIZIN (GLYCINE, GLYCYRRHIZIC ACID, METHIONINE) [Suspect]
     Active Substance: GLYCINE\GLYCYRRHIZIN\METHIONINE
     Indication: VIRAL HEPATITIS CARRIER
     Dosage: UNK
     Route: 065
     Dates: start: 20200928, end: 20201011
  3. OMEPRAZOLE. [Concomitant]
     Active Substance: OMEPRAZOLE
     Indication: VOMITING
     Dosage: UNK
  4. COMPOUND GLYCYRRHIZIN (CYSTEINE\GLYCINE\GLYCYRRHIZIN) [Suspect]
     Active Substance: CYSTEINE\GLYCINE\GLYCYRRHIZIN
     Indication: ASPARTATE AMINOTRANSFERASE INCREASED
     Dosage: UNK
     Route: 065
  5. MAGNESIUM ISOGLYCYRRHIZINATE [Suspect]
     Active Substance: MAGNESIUM ISOGLYCYRRHIZINATE
     Dosage: UNK
     Route: 065
     Dates: start: 20201020, end: 20201031
  6. OMEPRAZOLE. [Concomitant]
     Active Substance: OMEPRAZOLE
     Indication: NAUSEA
     Dosage: UNK (ENTERIC COATED CAPSULES)
     Route: 065
     Dates: start: 20201006, end: 20201012
  7. PLACEBO [Suspect]
     Active Substance: UNSPECIFIED INGREDIENT
     Indication: MIGRAINE
     Dosage: UNK
     Route: 058
     Dates: start: 20200702, end: 20200923
  8. REDUCED GLUTATHIONE SODIUM [Suspect]
     Active Substance: GLUTATHIONE
     Indication: ALANINE AMINOTRANSFERASE INCREASED
     Dosage: UNK
     Route: 065
     Dates: start: 20201019, end: 20201031
  9. MAGNESIUM ISOGLYCYRRHIZINATE [Suspect]
     Active Substance: MAGNESIUM ISOGLYCYRRHIZINATE
     Indication: ALANINE AMINOTRANSFERASE INCREASED
     Dosage: UNK
     Route: 065
     Dates: start: 20201019, end: 20201019

REACTIONS (1)
  - Chronic hepatitis B [Recovered/Resolved]

NARRATIVE: CASE EVENT DATE: 20201019
